FAERS Safety Report 6888513-4 (Version None)
Quarter: 2010Q3

REPORT INFORMATION
  Report Type: 
  Country: None (occurrence: None)
  Receive Date: 20100730
  Receipt Date: 20100719
  Transmission Date: 20110219
  Serious: Yes (Hospitalization)
  Sender: FDA-Public Use
  Company Number: PHHY2010US33011

PATIENT
  Sex: Female

DRUGS (7)
  1. RECLAST [Suspect]
     Indication: OSTEOPOROSIS
     Dosage: 5 MG
     Route: 042
     Dates: start: 20100512
  2. VITAMIN D [Concomitant]
     Dosage: UNK
  3. IMITREX [Concomitant]
     Indication: MIGRAINE
     Dosage: 6 MG, UNK
     Route: 048
  4. RELPAX [Concomitant]
     Indication: MIGRAINE
     Dosage: UNK
     Route: 048
  5. SEROQUEL [Concomitant]
     Indication: ANXIETY
     Dosage: 100 MG, UNK
     Route: 048
  6. SEROQUEL [Concomitant]
     Indication: DEPRESSION
  7. XANAX [Concomitant]
     Indication: INSOMNIA
     Dosage: 2 MG, UNK
     Route: 048

REACTIONS (20)
  - ALANINE AMINOTRANSFERASE INCREASED [None]
  - ARTHRALGIA [None]
  - ASPARTATE AMINOTRANSFERASE INCREASED [None]
  - BONE PAIN [None]
  - CHEST PAIN [None]
  - CHILLS [None]
  - DIARRHOEA [None]
  - DYSPNOEA [None]
  - HYPOPHOSPHATAEMIA [None]
  - MIGRAINE [None]
  - MUSCULOSKELETAL STIFFNESS [None]
  - MYALGIA [None]
  - NAUSEA [None]
  - PAIN [None]
  - PAIN IN EXTREMITY [None]
  - PYREXIA [None]
  - TRANSAMINASES INCREASED [None]
  - URINARY TRACT INFECTION [None]
  - VOMITING [None]
  - WHITE BLOOD CELL COUNT INCREASED [None]
